FAERS Safety Report 18042561 (Version 1)
Quarter: 2020Q3

REPORT INFORMATION
  Report Type: Spontaneous
  Country: CA (occurrence: CA)
  Receive Date: 20200720
  Receipt Date: 20200720
  Transmission Date: 20201103
  Serious: Yes (Other)
  Sender: FDA-Public Use
  Company Number: CA-TEVA-2020-CA-1801772

PATIENT
  Age: 27 Year
  Sex: Male

DRUGS (3)
  1. RIZATRIPTAN. [Concomitant]
     Active Substance: RIZATRIPTAN
  2. DULOXETINE. [Suspect]
     Active Substance: DULOXETINE
     Route: 048
  3. QUETIAPINE. [Concomitant]
     Active Substance: QUETIAPINE

REACTIONS (6)
  - Fatigue [Unknown]
  - Oropharyngeal pain [Unknown]
  - Skin burning sensation [Unknown]
  - Pyrexia [Unknown]
  - Stevens-Johnson syndrome [Unknown]
  - Accidental overdose [Unknown]
